FAERS Safety Report 9940032 (Version 1)
Quarter: 2014Q1

REPORT INFORMATION
  Report Type: Report from Study
  Country: US (occurrence: US)
  Receive Date: 20140303
  Receipt Date: 20140303
  Transmission Date: 20141002
  Serious: No
  Sender: FDA-Public Use
  Company Number: US-ABBVIE-13P-163-1033268-00

PATIENT
  Age: 20 Year
  Sex: Male

DRUGS (3)
  1. HUMIRA [Suspect]
     Indication: CROHN^S DISEASE
     Dates: start: 201204
  2. AMITRIPTYLINE [Concomitant]
     Indication: SLEEP DISORDER THERAPY
     Dosage: 50 MG
  3. OMEPRAZOLE [Concomitant]
     Indication: ABDOMINAL DISCOMFORT

REACTIONS (5)
  - Device malfunction [Not Recovered/Not Resolved]
  - Injection site pruritus [Not Recovered/Not Resolved]
  - Injection site haemorrhage [Not Recovered/Not Resolved]
  - Injection site erythema [Not Recovered/Not Resolved]
  - Drug dose omission [Not Recovered/Not Resolved]
